FAERS Safety Report 4144448 (Version 3)
Quarter: 2020Q3

REPORT INFORMATION
  Report Type: Report from Study
  Country: CH (occurrence: CH)
  Receive Date: 20040512
  Receipt Date: 20040813
  Transmission Date: 20201105
  Serious: Yes (Life-Threatening, Hospitalization)
  Sender: FDA-Public Use
  Company Number: CH-JNJFOC-20040406198

PATIENT
  Age: 30 Year
  Sex: Female

DRUGS (9)
  1. THIORIDAZINE HYDROCHLORIDE. [Concomitant]
     Active Substance: THIORIDAZINE HYDROCHLORIDE
     Indication: ANXIETY
  2. DESOGESTREL [Concomitant]
     Active Substance: DESOGESTREL
  3. CLEMASTINE [Concomitant]
     Active Substance: CLEMASTINE
     Indication: PROPHYLAXIS
     Route: 042
  4. DAFALGAN [Concomitant]
     Active Substance: ACETAMINOPHEN
     Indication: PROPHYLAXIS
  5. INFLIXIMAB [Suspect]
     Active Substance: INFLIXIMAB
     Route: 042
  6. GRACIAL [Concomitant]
     Indication: CONTRACEPTION
  7. INFLIXIMAB [Suspect]
     Active Substance: INFLIXIMAB
     Route: 042
  8. INFLIXIMAB [Suspect]
     Active Substance: INFLIXIMAB
     Route: 042
  9. TASMADERM [Concomitant]
     Dates: start: 20030610

REACTIONS (1)
  - Angioedema [None]

NARRATIVE: CASE EVENT DATE: 20040428
